FAERS Safety Report 6911933-6 (Version None)
Quarter: 2010Q3

REPORT INFORMATION
  Report Type: 
  Country: None (occurrence: None)
  Receive Date: 20100806
  Receipt Date: 20071005
  Transmission Date: 20110219
  Serious: Yes (Other)
  Sender: FDA-Public Use
  Company Number: US-PFIZER INC-2007084467

PATIENT
  Sex: Male
  Weight: 28 kg

DRUGS (25)
  1. VFEND [Suspect]
     Indication: ASPERGILLOSIS
     Route: 048
     Dates: end: 20070101
  2. VFEND [Suspect]
     Indication: ASPERGILLOSIS
     Dates: start: 20070101
  3. DRUG, UNSPECIFIED [Suspect]
  4. ACYCLOVIR [Concomitant]
  5. AMLODIPINE [Concomitant]
  6. PERIDEX [Concomitant]
     Route: 048
  7. CYCLOSPORINE [Concomitant]
  8. BENADRYL [Concomitant]
  9. NEXIUM [Concomitant]
  10. LIPID EMULSION /USA/ [Concomitant]
  11. TPN [Concomitant]
  12. LASIX [Concomitant]
  13. VISTARIL [Concomitant]
  14. IMMU-G [Concomitant]
     Route: 042
  15. ATIVAN [Concomitant]
  16. MEROPENEM [Concomitant]
  17. METRONIDAZOLE [Concomitant]
  18. MICAFUNGIN [Concomitant]
     Route: 042
  19. MORPHINE [Concomitant]
  20. CELLCEPT [Concomitant]
     Route: 042
  21. NIFEDIPINE [Concomitant]
  22. ZOFRAN [Concomitant]
  23. PENTAMIDINE ISETHIONATE [Concomitant]
  24. VANCOMYCIN [Concomitant]
     Route: 048
  25. ACETAMINOPHEN [Concomitant]

REACTIONS (5)
  - ADENOVIRUS INFECTION [None]
  - CYSTITIS HAEMORRHAGIC [None]
  - DIARRHOEA [None]
  - GRAFT VERSUS HOST DISEASE [None]
  - RENAL IMPAIRMENT [None]
